FAERS Safety Report 15189207 (Version 1)
Quarter: 2018Q3

REPORT INFORMATION
  Report Type: Spontaneous
  Country: US (occurrence: US)
  Receive Date: 20180724
  Receipt Date: 20180724
  Transmission Date: 20181010
  Serious: Yes (Other)
  Sender: FDA-Public Use
  Company Number: US-BAYER-200215847BWH

PATIENT
  Age: 86 Year
  Sex: Female
  Weight: 76.82 kg

DRUGS (8)
  1. HYZAAR [Concomitant]
     Active Substance: HYDROCHLOROTHIAZIDE\LOSARTAN POTASSIUM
     Route: 048
  2. AVELOX [Suspect]
     Active Substance: MOXIFLOXACIN HYDROCHLORIDE
     Indication: UPPER RESPIRATORY TRACT INFECTION
     Route: 048
     Dates: start: 20020605, end: 20020606
  3. GLUCOPHAGE [Concomitant]
     Active Substance: METFORMIN HYDROCHLORIDE
     Route: 048
  4. RELAFEN [Concomitant]
     Active Substance: NABUMETONE
     Route: 048
  5. PRINIVIL [Concomitant]
     Active Substance: LISINOPRIL
     Dosage: 5 MG (DAILY DOSE), , ORAL
     Route: 048
  6. LASIX [Concomitant]
     Active Substance: FUROSEMIDE
     Route: 048
  7. AVELOX [Suspect]
     Active Substance: MOXIFLOXACIN HYDROCHLORIDE
     Indication: URINARY TRACT INFECTION
  8. DIABETA [Concomitant]
     Active Substance: GLYBURIDE
     Route: 048

REACTIONS (1)
  - Hypoglycaemic coma [Not Recovered/Not Resolved]

NARRATIVE: CASE EVENT DATE: 20020607
